FAERS Safety Report 22280292 (Version 1)
Quarter: 2023Q2

REPORT INFORMATION
  Report Type: Spontaneous
  Country: US (occurrence: None)
  Receive Date: 20230501
  Receipt Date: 20230501
  Transmission Date: 20230722
  Serious: Yes (Hospitalization)
  Sender: FDA-Public Use
  Company Number: None

PATIENT
  Age: 70 Year
  Sex: Male
  Weight: 74 kg

DRUGS (1)
  1. MIRCERA [Suspect]
     Active Substance: METHOXY POLYETHYLENE GLYCOL-EPOETIN BETA
     Dosage: OTHER FREQUENCY : OTHER;?
     Route: 042
     Dates: start: 20230418, end: 20230418

REACTIONS (9)
  - Unresponsive to stimuli [None]
  - Eye movement disorder [None]
  - Pulse absent [None]
  - Blood pressure increased [None]
  - Tachypnoea [None]
  - Malaise [None]
  - Malaise [None]
  - Nausea [None]
  - Diarrhoea [None]

NARRATIVE: CASE EVENT DATE: 20230418
